FAERS Safety Report 8994409 (Version 2)
Quarter: 2016Q1

REPORT INFORMATION
  Report Type: Report from Study
  Country: US (occurrence: US)
  Receive Date: 20130102
  Receipt Date: 20160210
  Transmission Date: 20160526
  Serious: Yes (Other)
  Sender: FDA-Public Use
  Company Number: US-AMGEN-USASP2012080361

PATIENT
  Age: 63 Year
  Sex: Female

DRUGS (1)
  1. ENBREL [Suspect]
     Active Substance: ETANERCEPT
     Indication: RHEUMATOID ARTHRITIS
     Dosage: 50 MG, QWK
     Route: 065
     Dates: start: 2005, end: 2007

REACTIONS (9)
  - Ankle deformity [Unknown]
  - Weight decreased [Unknown]
  - Social problem [Unknown]
  - Emotional disorder [Unknown]
  - Rheumatoid arthritis [Not Recovered/Not Resolved]
  - Disability [Unknown]
  - Foot deformity [Unknown]
  - Hand deformity [Not Recovered/Not Resolved]
  - Mobility decreased [Unknown]
